FAERS Safety Report 20983257 (Version 1)
Quarter: 2022Q2

REPORT INFORMATION
  Report Type: Spontaneous
  Country: US (occurrence: US)
  Receive Date: 20220620
  Receipt Date: 20220620
  Transmission Date: 20220721
  Serious: Yes (Hospitalization)
  Sender: FDA-Public Use
  Company Number: US-PFIZER INC-PV202200004419

PATIENT
  Sex: Male

DRUGS (1)
  1. MYCOBUTIN [Suspect]
     Active Substance: RIFABUTIN
     Indication: Tuberculosis
     Dosage: UNK

REACTIONS (2)
  - Throat irritation [Unknown]
  - Off label use [Unknown]
